FAERS Safety Report 9617080 (Version 1)
Quarter: 2013Q4

REPORT INFORMATION
  Report Type: Report from Study
  Country: BR (occurrence: BR)
  Receive Date: 20131011
  Receipt Date: 20131011
  Transmission Date: 20140711
  Serious: Yes (Other)
  Sender: FDA-Public Use
  Company Number: PHHY2013BR113912

PATIENT
  Sex: Female

DRUGS (5)
  1. EXELON PATCH [Suspect]
     Indication: MEMORY IMPAIRMENT
     Dosage: 4.6 MG, DAILY (PATCH 5 CM2)
     Route: 062
  2. NAPRIX D [Concomitant]
     Dosage: UNK UKN, UNK
  3. MVI [Concomitant]
     Dosage: UNK UKN, UNK
  4. SEROQUEL [Concomitant]
     Indication: SLEEP DISORDER
     Dosage: UNK UKN, UNK
  5. PURAN T4 [Concomitant]
     Indication: THYROID DISORDER
     Dosage: UNK UKN, UNK

REACTIONS (4)
  - Disorientation [Recovered/Resolved]
  - Depression [Recovered/Resolved]
  - Crying [Recovered/Resolved]
  - Psychomotor hyperactivity [Recovered/Resolved]
